FAERS Safety Report 4542362-0 (Version None)
Quarter: 2004Q4

REPORT INFORMATION
  Report Type: 
  Country: None (occurrence: None)
  Receive Date: 20041229
  Receipt Date: 20041214
  Transmission Date: 20050328
  Serious: Yes (Other)
  Sender: FDA-Public Use
  Company Number: 2004-UK-01347UK

PATIENT
  Age: 39 Year
  Sex: Male
  Weight: 76.2 kg

DRUGS (3)
  1. MORPHINE SULFATE [Suspect]
     Indication: PAIN
     Dosage: 20 MG, PO
     Route: 048
     Dates: start: 20041130, end: 20041201
  2. IBUPROFEN [Concomitant]
  3. KAPAKE (PANADEINE CO) [Concomitant]

REACTIONS (2)
  - EYE SWELLING [None]
  - SWELLING FACE [None]
